APPROVED DRUG PRODUCT: MEPROSPAN
Active Ingredient: MEPROBAMATE
Strength: 200MG
Dosage Form/Route: CAPSULE, EXTENDED RELEASE;ORAL
Application: N011284 | Product #001
Applicant: MEDPOINTE PHARMACEUTICALS MEDPOINTE HEALTHCARE INC
Approved: Approved Prior to Jan 1, 1982 | RLD: No | RS: No | Type: DISCN